FAERS Safety Report 5151891-0 (Version None)
Quarter: 2006Q4

REPORT INFORMATION
  Report Type: 
  Country: None (occurrence: None)
  Receive Date: 20061115
  Receipt Date: 20061113
  Transmission Date: 20070319
  Serious: Yes (Hospitalization)
  Sender: FDA-Public Use
  Company Number: JP-ALLERGAN-0607364US

PATIENT
  Age: 56 Year
  Sex: Male

DRUGS (1)
  1. ALESION TABLET [Suspect]
     Indication: PRURITUS
     Route: 048
     Dates: start: 20060703, end: 20060804

REACTIONS (3)
  - ALANINE AMINOTRANSFERASE INCREASED [None]
  - ASPARTATE AMINOTRANSFERASE INCREASED [None]
  - HEPATIC ENZYME INCREASED [None]
